FAERS Safety Report 8206446-8 (Version None)
Quarter: 2012Q1

REPORT INFORMATION
  Report Type: 
  Country: None (occurrence: None)
  Receive Date: 20120313
  Receipt Date: 20120310
  Transmission Date: 20120608
  Serious: Yes (Hospitalization, Other)
  Sender: FDA-Public Use
  Company Number: PHHY2012MX021415

PATIENT
  Age: 53 Year
  Sex: Female

DRUGS (1)
  1. DIOVAN HCT [Suspect]
     Indication: HYPERTENSION
     Dosage: 1 DF (160MG VALS/12.5MG HYDROCHLOROTHIAZIDE), DAILY
     Dates: start: 20090801, end: 20120301

REACTIONS (5)
  - HAEMOGLOBIN DECREASED [None]
  - RENAL DISORDER [None]
  - GENERAL PHYSICAL CONDITION ABNORMAL [None]
  - LIMB DISCOMFORT [None]
  - DECREASED APPETITE [None]
